FAERS Safety Report 9564075 (Version 1)
Quarter: 2013Q3

REPORT INFORMATION
  Report Type: Spontaneous
  Country: GB (occurrence: GB)
  Receive Date: 20130929
  Receipt Date: 20130929
  Transmission Date: 20140515
  Serious: Yes (Other)
  Sender: FDA-Public Use
  Company Number: PHFR2013GB005505

PATIENT
  Sex: Male

DRUGS (2)
  1. EXELON PATCH [Suspect]
     Dosage: 9.5 MG, UNK
  2. EXELON PATCH [Suspect]
     Dosage: 13.3 MG, QOD

REACTIONS (1)
  - Homicidal ideation [Unknown]
